FAERS Safety Report 5326239-9 (Version None)
Quarter: 2007Q2

REPORT INFORMATION
  Report Type: 
  Country: None (occurrence: None)
  Receive Date: 20070516
  Receipt Date: 20070510
  Transmission Date: 20071010
  Serious: Yes (Death)
  Sender: FDA-Public Use
  Company Number: ES-GENENTECH-241287

PATIENT
  Sex: Female
  Weight: 44.8 kg

DRUGS (5)
  1. RITUXIMAB [Suspect]
     Indication: B-CELL LYMPHOMA
     Dosage: 600 MG, Q28D
     Route: 042
     Dates: start: 20050706, end: 20060616
  2. FLUDARABINE PHOSPHATE [Suspect]
     Indication: B-CELL LYMPHOMA
     Dosage: 75 MG/M2, Q28D
     Route: 042
     Dates: start: 20050704, end: 20051128
  3. CYCLOPHOSPHAMIDE [Suspect]
     Indication: B-CELL LYMPHOMA
     Dosage: 1000 MG/M2, Q28D
     Route: 042
     Dates: start: 20050704, end: 20051128
  4. INSULIN RETARD LEO [Concomitant]
     Indication: DRUG USE FOR UNKNOWN INDICATION
  5. FLUKONAZOL [Concomitant]
     Indication: DRUG USE FOR UNKNOWN INDICATION
     Dosage: 100 MG, QD
     Dates: start: 20070319, end: 20070501

REACTIONS (1)
  - SEPTIC SHOCK [None]
